FAERS Safety Report 8396235-6 (Version None)
Quarter: 2012Q1

REPORT INFORMATION
  Report Type: 
  Country: None (occurrence: None)
  Receive Date: 20120323
  Receipt Date: 20110311
  Transmission Date: 20120608
  Serious: Yes (Other)
  Sender: FDA-Public Use
  Company Number: 163-21880-11031624

PATIENT
  Age: 65 Year
  Sex: Female
  Weight: 85 kg

DRUGS (3)
  1. REVLIMID [Suspect]
     Indication: MULTIPLE MYELOMA
     Dosage: 25 MG, MON, WED, FRI, PO, MON, THURSDAY, PO
     Route: 048
     Dates: start: 20100604
  2. REVLIMID [Suspect]
     Indication: MULTIPLE MYELOMA
     Dosage: 25 MG, MON, WED, FRI, PO, MON, THURSDAY, PO
     Route: 048
     Dates: start: 20100604
  3. PROCRIT [Concomitant]

REACTIONS (2)
  - SWELLING FACE [None]
  - EXFOLIATIVE RASH [None]
